FAERS Safety Report 8680057 (Version 2)
Quarter: 2012Q4

REPORT INFORMATION
  Report Type: Report from Study
  Country: US (occurrence: US)
  Receive Date: 20120724
  Receipt Date: 20121224
  Transmission Date: 20130627
  Serious: Yes (Hospitalization)
  Sender: FDA-Public Use
  Company Number: US-ROCHE-1088165

PATIENT
  Age: 65 Year
  Sex: Female
  Weight: 82.17 kg

DRUGS (10)
  1. OMALIZUMAB [Suspect]
     Indication: ASTHMA
     Route: 058
     Dates: start: 20120705, end: 20120705
  2. QNASL [Concomitant]
  3. SYMBICORT [Concomitant]
  4. ALBUTEROL [Concomitant]
  5. AZELASTINE [Concomitant]
  6. CARISOPRODOL [Concomitant]
  7. OXYCODONE [Concomitant]
  8. XOPENEX [Concomitant]
  9. DIOVAN [Concomitant]
  10. METROPOLOL COMP [Concomitant]

REACTIONS (6)
  - Anaphylactic reaction [Recovered/Resolved]
  - Headache [Recovered/Resolved]
  - Wheezing [Recovered/Resolved]
  - Paraesthesia oral [Recovered/Resolved]
  - Throat irritation [Recovered/Resolved]
  - Paraesthesia [Recovered/Resolved]
